FAERS Safety Report 15273080 (Version 1)
Quarter: 2018Q3

REPORT INFORMATION
  Report Type: Spontaneous
  Country: US (occurrence: US)
  Receive Date: 20180813
  Receipt Date: 20180813
  Transmission Date: 20181010
  Serious: No
  Sender: FDA-Public Use
  Company Number: US-PURDUE-USA-2018-0144146

PATIENT
  Age: 78 Year
  Sex: Female

DRUGS (1)
  1. BUTRANS [Suspect]
     Active Substance: BUPRENORPHINE
     Indication: PAIN
     Dosage: 10 MCG/HR, WEEKLY
     Route: 062
     Dates: start: 20180706

REACTIONS (5)
  - Feeling hot [Unknown]
  - Muscle spasms [Unknown]
  - Drug effect increased [Unknown]
  - Drug hypersensitivity [Unknown]
  - Product quality issue [Unknown]

NARRATIVE: CASE EVENT DATE: 20180706
